FAERS Safety Report 14559783 (Version 1)
Quarter: 2018Q1

REPORT INFORMATION
  Report Type: Spontaneous
  Country: US (occurrence: US)
  Receive Date: 20180220
  Receipt Date: 20180220
  Transmission Date: 20180509
  Serious: Yes (Other)
  Sender: FDA-Public Use
  Company Number: None

PATIENT
  Age: 66 Year
  Weight: 120.6 kg

DRUGS (12)
  1. CELECOXIB 200MG [Suspect]
     Active Substance: CELECOXIB
     Indication: OSTEOARTHRITIS
     Dosage: ?          QUANTITY:60 CAPSULE(S);?
     Route: 048
     Dates: start: 20180205, end: 20180219
  2. IRBESARTAN. [Concomitant]
     Active Substance: IRBESARTAN
  3. BIOTIN [Concomitant]
     Active Substance: BIOTIN
  4. METOPROLOL. [Concomitant]
     Active Substance: METOPROLOL
  5. CELECOXIB. [Concomitant]
     Active Substance: CELECOXIB
  6. OMPERAZOLE [Concomitant]
     Active Substance: OMEPRAZOLE
  7. MONTELUKAST [Concomitant]
     Active Substance: MONTELUKAST SODIUM
  8. VITAMIN B12 [Concomitant]
     Active Substance: CYANOCOBALAMIN
  9. VITAMIN D3 [Concomitant]
     Active Substance: CHOLECALCIFEROL
  10. METFORMIN [Concomitant]
     Active Substance: METFORMIN HYDROCHLORIDE
  11. PAXIL [Concomitant]
     Active Substance: PAROXETINE HYDROCHLORIDE
  12. FLUCTANOSE [Concomitant]

REACTIONS (6)
  - Drug ineffective [None]
  - Insurance issue [None]
  - Blood glucose increased [None]
  - Inability to afford medication [None]
  - Product substitution issue [None]
  - Discomfort [None]

NARRATIVE: CASE EVENT DATE: 20180219
